FAERS Safety Report 8987987 (Version 1)
Quarter: 2012Q4

REPORT INFORMATION
  Report Type: 
  Country: US (occurrence: US)
  Receive Date: 20121227
  Receipt Date: 20121227
  Transmission Date: 20130627
  Serious: Yes (Death, Other)
  Sender: FDA-Public Use
  Company Number: US-CELGENEUS-163-21880-11121189

PATIENT
  Age: 69 Year
  Sex: Male
  Weight: 76.73 kg

DRUGS (9)
  1. REVLIMID [Suspect]
     Indication: NON-HODGKIN^S LYMPHOMA
     Dosage: 25 Milligram
     Route: 048
     Dates: start: 20111117, end: 20120127
  2. ASPIRIN [Concomitant]
     Indication: DRUG USE FOR UNKNOWN INDICATION
     Dosage: 81 Milligram
     Route: 065
  3. PERCOCET [Concomitant]
     Indication: DRUG USE FOR UNKNOWN INDICATION
     Route: 065
  4. ADVIL [Concomitant]
     Indication: DRUG USE FOR UNKNOWN INDICATION
     Route: 065
  5. TRANSFUSIONS [Concomitant]
     Indication: DRUG USE FOR UNKNOWN INDICATION
     Route: 065
  6. VALACYCLOVIR [Concomitant]
     Indication: PROPHYLAXIS
     Dosage: 2 Gram
     Route: 065
  7. FLUCONAZOLE [Concomitant]
     Indication: PROPHYLAXIS
     Dosage: 400 Milligram
     Route: 065
  8. OXYCONTIN [Concomitant]
     Indication: PAIN
     Dosage: 80 Milligram
     Route: 065
  9. DILTIAZEM [Concomitant]
     Indication: HYPERTENSION
     Dosage: 340 Milligram
     Route: 065

REACTIONS (5)
  - Non-Hodgkin^s lymphoma [Fatal]
  - Anaemia [Recovered/Resolved]
  - Neutropenia [Recovered/Resolved]
  - Pancytopenia [Unknown]
  - Fatigue [Unknown]
